FAERS Safety Report 21534844 (Version 1)
Quarter: 2022Q4

REPORT INFORMATION
  Report Type: Spontaneous
  Country: US (occurrence: US)
  Receive Date: 20221101
  Receipt Date: 20221101
  Transmission Date: 20230112
  Serious: No
  Sender: FDA-Public Use
  Company Number: US-MIGRATION_PFIZER-2022BHV001525

PATIENT
  Age: 47 Year
  Sex: Female

DRUGS (2)
  1. NURTEC ODT [Suspect]
     Active Substance: RIMEGEPANT SULFATE
     Indication: Migraine
     Dosage: ON FOLLOW-UP PATIENT CONFIRMED THAT SHE TAKES 75 MG, ONE TABLET BY MOUTH AS NEEDED.
     Route: 048
     Dates: start: 20220401
  2. MAXALT [Concomitant]
     Active Substance: RIZATRIPTAN BENZOATE
     Indication: Migraine
     Route: 065

REACTIONS (1)
  - Drug ineffective [Unknown]
